FAERS Safety Report 8576371 (Version 2)
Quarter: 2014Q1

REPORT INFORMATION
  Report Type: Spontaneous
  Country: US (occurrence: None)
  Receive Date: 20120323
  Receipt Date: 20140306
  Transmission Date: 20141002
  Serious: Yes (Other)
  Sender: FDA-Public Use
  Company Number: 163-21880-11020406

PATIENT
  Age: 53 Year
  Sex: Male
  Weight: 88.17 kg

DRUGS (3)
  1. REVLIMID [Suspect]
     Indication: PLASMA CELL MYELOMA
     Dosage: 25 MG, 1 IN 1 D, PO, 25 MG, DAILY FOR 21 DAYS, PO
     Route: 048
     Dates: start: 200908
  2. OMEPRAZOLE DR (OMEPRAZOLE) [Concomitant]
  3. BENZONATATE [Concomitant]

REACTIONS (1)
  - Thrombosis [None]
